FAERS Safety Report 5920587-7 (Version None)
Quarter: 2008Q4

REPORT INFORMATION
  Report Type: 
  Country: None (occurrence: None)
  Receive Date: 20081016
  Receipt Date: 20080815
  Transmission Date: 20090506
  Serious: No
  Sender: FDA-Public Use
  Company Number: US-BAYER-200831111NA

PATIENT
  Age: 18 Year
  Sex: Female
  Weight: 53 kg

DRUGS (3)
  1. MIRENA [Suspect]
     Indication: CONTRACEPTION
     Route: 015
     Dates: start: 20080815, end: 20080815
  2. MIRENA [Suspect]
     Route: 015
     Dates: start: 20080815
  3. ADVIL [Concomitant]
     Indication: PREMEDICATION
     Route: 048
     Dates: start: 20080815

REACTIONS (2)
  - COMPLICATION OF DEVICE INSERTION [None]
  - PROCEDURAL PAIN [None]
